FAERS Safety Report 9995329 (Version 1)
Quarter: 2014Q1

REPORT INFORMATION
  Report Type: Spontaneous
  Country: US (occurrence: US)
  Receive Date: 20140311
  Receipt Date: 20140311
  Transmission Date: 20141002
  Serious: Yes (Other)
  Sender: FDA-Public Use
  Company Number: US-BAYER-2014-034048

PATIENT
  Age: 42 Year
  Sex: Female

DRUGS (2)
  1. MIRENA [Suspect]
     Indication: MENORRHAGIA
     Dosage: 20 MCG/24HR, CONT
     Route: 015
     Dates: start: 20140110
  2. MIRENA [Suspect]
     Indication: CONTRACEPTION

REACTIONS (3)
  - Device dislocation [Not Recovered/Not Resolved]
  - Drug administration error [None]
  - Device deployment issue [Not Recovered/Not Resolved]
